FAERS Safety Report 15567077 (Version 2)
Quarter: 2018Q4

REPORT INFORMATION
  Report Type: Report from Study
  Country: JP (occurrence: JP)
  Receive Date: 20181030
  Receipt Date: 20181218
  Transmission Date: 20190205
  Serious: Yes (Life-Threatening, Hospitalization, Disabling, Other)
  Sender: FDA-Public Use
  Company Number: JP-ACTELION-A-CH2018-180858

PATIENT
  Age: 52 Year
  Sex: Female
  Weight: 32.7 kg

DRUGS (22)
  1. OPSUMIT [Suspect]
     Active Substance: MACITENTAN
     Indication: PULMONARY ARTERIAL HYPERTENSION
     Dosage: 10 MG, QD
     Route: 048
     Dates: start: 20180302, end: 20180627
  2. BISONO [Concomitant]
     Active Substance: BISOPROLOL
  3. UPTRAVI [Suspect]
     Active Substance: SELEXIPAG
     Dosage: 0.2 MG, BID
     Route: 048
     Dates: end: 20181002
  4. BAKTAR [Suspect]
     Active Substance: SULFAMETHOXAZOLE\TRIMETHOPRIM
     Indication: THROMBOCYTOPENIA
     Dosage: UNK, QD
     Route: 048
     Dates: start: 20180319, end: 20180413
  5. PREDONINE [Suspect]
     Active Substance: PREDNISOLONE
     Dosage: UNK
     Route: 048
     Dates: start: 20180309
  6. ADCIRCA [Concomitant]
     Active Substance: TADALAFIL
     Indication: PULMONARY ARTERIAL HYPERTENSION
     Dosage: 40 MG, QD
  7. LASIX [Concomitant]
     Active Substance: FUROSEMIDE
     Dosage: 20 MG, QD
  8. OXYGEN. [Concomitant]
     Active Substance: OXYGEN
  9. PREDONINE [Suspect]
     Active Substance: PREDNISOLONE
     Dosage: UNK
     Route: 048
  10. SAMSCA [Concomitant]
     Active Substance: TOLVAPTAN
  11. NEXIUM [Concomitant]
     Active Substance: ESOMEPRAZOLE MAGNESIUM
  12. SPIRONOLACTONE. [Concomitant]
     Active Substance: SPIRONOLACTONE
     Dosage: 25 MG, QD
  13. WARFARIN [Concomitant]
     Active Substance: WARFARIN
     Dosage: UNK
     Dates: end: 20180915
  14. DIART [Concomitant]
     Active Substance: AZOSEMIDE
     Dosage: 30 MG, QD
  15. UPTRAVI [Suspect]
     Active Substance: SELEXIPAG
     Dosage: 0.2 MG, BID
     Route: 048
     Dates: start: 20180223, end: 20180401
  16. PREDONINE [Suspect]
     Active Substance: PREDNISOLONE
     Indication: SJOGREN^S SYNDROME
     Dosage: 40 MG, QD
     Route: 048
     Dates: start: 20180319
  17. MIYA-BM [Concomitant]
     Active Substance: CLOSTRIDIUM BUTYRICUM SPORES STRAIN M-55
  18. ROZEREM [Concomitant]
     Active Substance: RAMELTEON
  19. UPTRAVI [Suspect]
     Active Substance: SELEXIPAG
     Indication: PULMONARY ARTERIAL HYPERTENSION
     Dosage: 0.4 MG, BID
     Route: 048
     Dates: start: 20180402, end: 20180410
  20. UPTRAVI [Suspect]
     Active Substance: SELEXIPAG
     Dosage: 0.4 MG, BID
     Route: 048
     Dates: start: 20181003, end: 20181004
  21. SLOW-K [Concomitant]
     Active Substance: POTASSIUM CHLORIDE
  22. UPTRAVI [Suspect]
     Active Substance: SELEXIPAG
     Dosage: UNK
     Route: 048
     Dates: start: 20180425

REACTIONS (10)
  - Osteomyelitis [Recovered/Resolved with Sequelae]
  - Cytomegalovirus infection [Recovered/Resolved]
  - Staphylococcal bacteraemia [Recovered/Resolved]
  - Pneumonia [Recovered/Resolved with Sequelae]
  - Hypercapnia [Recovered/Resolved with Sequelae]
  - Blood alkaline phosphatase increased [Recovered/Resolved]
  - Hip arthroplasty [Unknown]
  - Platelet count decreased [Recovering/Resolving]
  - Femur fracture [Unknown]
  - Gamma-glutamyltransferase increased [Recovering/Resolving]

NARRATIVE: CASE EVENT DATE: 20180307
